FAERS Safety Report 19379108 (Version 1)
Quarter: 2021Q2

REPORT INFORMATION
  Report Type: Spontaneous
  Country: US (occurrence: US)
  Receive Date: 20210607
  Receipt Date: 20210607
  Transmission Date: 20210717
  Serious: Yes (Hospitalization)
  Sender: FDA-Public Use
  Company Number: US-SA-2021SA187297

PATIENT
  Age: 63 Year
  Sex: Female

DRUGS (6)
  1. IRON [Concomitant]
     Active Substance: IRON
  2. STOOL SOFTENER (DOCUSATE) [Concomitant]
     Active Substance: DOCUSATE
  3. BACLOFEN. [Concomitant]
     Active Substance: BACLOFEN
  4. ULTRAM ER [Concomitant]
     Active Substance: TRAMADOL HYDROCHLORIDE
  5. OXYCODONE [Concomitant]
     Active Substance: OXYCODONE
  6. TERIFLUNOMIDE. [Suspect]
     Active Substance: TERIFLUNOMIDE
     Indication: MULTIPLE SCLEROSIS
     Dosage: 14 MG, QD
     Route: 048
     Dates: start: 2018

REACTIONS (3)
  - Hospitalisation [Not Recovered/Not Resolved]
  - COVID-19 [Not Recovered/Not Resolved]
  - General physical health deterioration [Not Recovered/Not Resolved]
